FAERS Safety Report 8372127-3 (Version None)
Quarter: 2012Q2

REPORT INFORMATION
  Report Type: 
  Country: None (occurrence: None)
  Receive Date: 20120521
  Receipt Date: 20120509
  Transmission Date: 20120825
  Serious: Yes (Other)
  Sender: FDA-Public Use
  Company Number: MX-BRISTOL-MYERS SQUIBB COMPANY-16587941

PATIENT
  Age: 50 Year
  Sex: Male
  Weight: 100 kg

DRUGS (4)
  1. ASPIRIN [Concomitant]
     Dosage: 1 DF: 1 TABS 100MG TABS
     Route: 048
     Dates: start: 20100101
  2. LERCANIDIPINE [Concomitant]
     Indication: HYPERTENSION
     Dosage: 1 DF: 1 TABS 10MG TABS
     Route: 048
     Dates: start: 20100101
  3. IRBESARTAN AND HYDROCHLOROTHIAZIDE [Suspect]
     Indication: HYPERTENSION
     Dosage: 1 DF = 1 1/2 TABLET 1 TABLET IN THE MORNING AND A HALF TABLET AT NIGHT
     Route: 048
     Dates: start: 20110901
  4. IRBESARTAN AND HYDROCHLOROTHIAZIDE [Suspect]
     Indication: HYPERTENSION
     Dosage: 1 DF: 1 TABS/24HRS
     Route: 048
     Dates: start: 20100101, end: 20110901

REACTIONS (2)
  - MEDICATION ERROR [None]
  - WEIGHT DECREASED [None]
